FAERS Safety Report 24733009 (Version 1)
Quarter: 2024Q4

REPORT INFORMATION
  Report Type: Spontaneous
  Country: US (occurrence: US)
  Receive Date: 20241213
  Receipt Date: 20241213
  Transmission Date: 20250115
  Serious: No
  Sender: SANOFI AVENTIS
  Company Number: US-SA-2024SA366547

PATIENT
  Age: 13 Year
  Sex: Male
  Weight: 47.85 kg

DRUGS (2)
  1. DUPIXENT [Suspect]
     Active Substance: DUPILUMAB
     Indication: Illness
     Dosage: 200 MG, QOW
     Route: 058
  2. CABTREO [Concomitant]
     Active Substance: ADAPALENE\BENZOYL PEROXIDE\CLINDAMYCIN PHOSPHATE
     Dosage: UNK
     Dates: start: 202408

REACTIONS (4)
  - Eyelid skin dryness [Recovering/Resolving]
  - Eyelid rash [Recovering/Resolving]
  - Dry skin [Recovering/Resolving]
  - Skin weeping [Recovering/Resolving]

NARRATIVE: CASE EVENT DATE: 20241204
